FAERS Safety Report 7032053-9 (Version None)
Quarter: 2010Q4

REPORT INFORMATION
  Report Type: 
  Country: None (occurrence: None)
  Receive Date: 20101007
  Receipt Date: 20101001
  Transmission Date: 20110411
  Serious: Yes (Other)
  Sender: FDA-Public Use
  Company Number: GB-WYE-G06774110

PATIENT
  Sex: Male

DRUGS (1)
  1. REFACTO [Suspect]
     Dosage: UNKNOWN

REACTIONS (2)
  - DRUG DOSE OMISSION [None]
  - HAEMORRHAGE [None]
